FAERS Safety Report 5423305-4 (Version None)
Quarter: 2007Q3

REPORT INFORMATION
  Report Type: 
  Country: None (occurrence: None)
  Receive Date: 20070823
  Receipt Date: 20070817
  Transmission Date: 20080115
  Serious: Yes (Hospitalization)
  Sender: FDA-Public Use
  Company Number: PHFR2007GB01871

PATIENT
  Age: 35 Year
  Sex: Male

DRUGS (6)
  1. CLOZARIL [Suspect]
     Indication: SCHIZOPHRENIA
     Dosage: 225MG AM / 300MG PM
     Route: 048
     Dates: start: 20031219
  2. CLOZARIL [Suspect]
     Dosage: OVERDOSE OF 525MG X 2
     Route: 048
     Dates: start: 20070607
  3. METHADONE HCL [Suspect]
     Dosage: UNK, UNK
     Route: 065
     Dates: start: 20070607
  4. HYOSCINE HBR HYT [Concomitant]
     Route: 065
  5. PROMAZINE HYDROCHLORIDE [Concomitant]
     Dosage: UNK, PRN
     Route: 065
  6. ATENOLOL [Concomitant]
     Route: 065

REACTIONS (7)
  - AGITATION [None]
  - DIZZINESS [None]
  - HALLUCINATION, AUDITORY [None]
  - HALLUCINATION, VISUAL [None]
  - OVERDOSE [None]
  - PALLOR [None]
  - SOMNOLENCE [None]
